FAERS Safety Report 6894777-3 (Version None)
Quarter: 2010Q3

REPORT INFORMATION
  Report Type: 
  Country: None (occurrence: None)
  Receive Date: 20100802
  Receipt Date: 20100719
  Transmission Date: 20110219
  Serious: Yes (Hospitalization)
  Sender: FDA-Public Use
  Company Number: GB-PAR PHARMACEUTICAL, INC-PAR_01682_2007

PATIENT

DRUGS (6)
  1. IBUPROFEN [Suspect]
     Indication: TOOTHACHE
     Dosage: 80 MG/KG, QD
     Route: 048
  2. PARACETAMOL [Suspect]
     Indication: TOOTHACHE
     Dosage: 225 MG/KG, QD
     Route: 048
  3. ACETAMINOPHEN AND CODEINE PHOSPHATE [Suspect]
     Indication: TOOTHACHE
     Dosage: DF
     Route: 065
  4. ADRENALINE/00003901/ [Concomitant]
     Indication: PULPITIS DENTAL
     Dosage: DF
     Route: 065
  5. BUPIVACAINE HCL [Concomitant]
     Indication: PULPITIS DENTAL
     Dosage: DF
     Route: 065
  6. LIGNOCAINE HYDROCHLORIDE [Concomitant]
     Indication: PULPITIS DENTAL
     Dosage: DF
     Route: 065

REACTIONS (2)
  - ACCIDENTAL OVERDOSE [None]
  - THERAPEUTIC AGENT TOXICITY [None]
